FAERS Safety Report 20867551 (Version 1)
Quarter: 2022Q2

REPORT INFORMATION
  Report Type: Spontaneous
  Country: US (occurrence: US)
  Receive Date: 20220524
  Receipt Date: 20220524
  Transmission Date: 20220721
  Serious: Yes (Other)
  Sender: FDA-Public Use
  Company Number: US-LUPIN PHARMACEUTICALS INC.-2022-07426

PATIENT
  Age: 17 Year
  Sex: Female

DRUGS (20)
  1. LEVOFLOXACIN [Suspect]
     Active Substance: LEVOFLOXACIN
     Indication: Pseudomonas infection
     Dosage: 750 MG, QD
     Route: 048
  2. TOBRAMYCIN [Suspect]
     Active Substance: TOBRAMYCIN
     Indication: Pseudomonas infection
     Dosage: UNK
     Route: 055
  3. CEFTAZIDIME [Suspect]
     Active Substance: CEFTAZIDIME
     Indication: Pseudomonas infection
     Dosage: UNK
     Route: 042
  4. COLISTIN [Suspect]
     Active Substance: COLISTIN
     Indication: Pseudomonas infection
     Dosage: UNK
     Route: 042
  5. COLISTIN [Suspect]
     Active Substance: COLISTIN
     Dosage: UNK
     Route: 055
  6. AZTREONAM [Suspect]
     Active Substance: AZTREONAM
     Indication: Pseudomonas infection
     Dosage: 2 GRAM EVERY 6 HOURS
     Route: 042
  7. AZTREONAM [Suspect]
     Active Substance: AZTREONAM
     Dosage: UNK
     Route: 055
  8. MEROPENEM [Suspect]
     Active Substance: MEROPENEM
     Indication: Pseudomonas infection
     Dosage: UNK
     Route: 042
  9. CEFEPIME [Suspect]
     Active Substance: CEFEPIME HYDROCHLORIDE
     Indication: Pseudomonas infection
     Dosage: UNK
     Route: 042
  10. CEFTOLOZANE SULFATE\TAZOBACTAM SODIUM [Suspect]
     Active Substance: CEFTOLOZANE SULFATE\TAZOBACTAM SODIUM
     Indication: Pseudomonas infection
     Dosage: 3 GRAM, TID
     Route: 042
  11. LEVOFLOXACIN [Suspect]
     Active Substance: LEVOFLOXACIN
     Indication: Pseudomonas infection
     Dosage: UNK
     Route: 042
  12. LEVOFLOXACIN [Suspect]
     Active Substance: LEVOFLOXACIN
     Dosage: UNK
     Route: 042
  13. TOBRAMYCIN [Suspect]
     Active Substance: TOBRAMYCIN
     Indication: Pseudomonas infection
     Dosage: 500 MG, QD
     Route: 042
  14. TOBRAMYCIN [Suspect]
     Active Substance: TOBRAMYCIN
     Dosage: 330 MG, QD
     Route: 042
  15. MEROPENEM\VABORBACTAM [Suspect]
     Active Substance: MEROPENEM\VABORBACTAM
     Indication: Pseudomonas infection
     Dosage: 4 GRAM, TID
     Route: 042
  16. AVIBACTAM SODIUM\CEFTAZIDIME [Concomitant]
     Active Substance: AVIBACTAM SODIUM\CEFTAZIDIME
     Indication: Pseudomonas infection
     Dosage: 2.5 GRAM, TID
     Route: 042
  17. FOSFOMYCIN [Concomitant]
     Active Substance: FOSFOMYCIN
     Indication: Pseudomonas infection
     Dosage: 3 GRAM (EVERY 6H )
     Route: 048
  18. FOSFOMYCIN [Concomitant]
     Active Substance: FOSFOMYCIN
     Dosage: 3 GRAM (EVERY 6H )
     Route: 048
  19. FOSFOMYCIN [Concomitant]
     Active Substance: FOSFOMYCIN
     Dosage: 4 GRAM, TID
     Route: 042
  20. FOSFOMYCIN [Concomitant]
     Active Substance: FOSFOMYCIN
     Dosage: 8 GRAM, TID
     Route: 042

REACTIONS (1)
  - Drug ineffective [Unknown]
